APPROVED DRUG PRODUCT: MILRINONE LACTATE IN DEXTROSE 5% IN PLASTIC CONTAINER
Active Ingredient: MILRINONE LACTATE
Strength: EQ 40MG BASE/200ML (EQ 0.2MG BASE/ML)
Dosage Form/Route: INJECTABLE;INJECTION
Application: A213585 | Product #002 | TE Code: AP
Applicant: GLAND PHARMA LTD
Approved: Jul 16, 2020 | RLD: No | RS: No | Type: RX